FAERS Safety Report 20532992 (Version 25)
Quarter: 2023Q1

REPORT INFORMATION
  Report Type: Report from Study
  Country: CA (occurrence: CA)
  Receive Date: 20220301
  Receipt Date: 20230228
  Transmission Date: 20230417
  Serious: Yes (Other)
  Sender: FDA-Public Use
  Company Number: CA-TAKEDA-CA202031603

PATIENT
  Age: 8 Year
  Sex: Male
  Weight: 31 kg

DRUGS (18)
  1. IDURSULFASE [Suspect]
     Active Substance: IDURSULFASE
     Indication: Mucopolysaccharidosis II
     Dosage: 0.5 MILLIGRAM/KILOGRAM
     Route: 042
     Dates: start: 20150416
  2. IDURSULFASE [Suspect]
     Active Substance: IDURSULFASE
     Dosage: 15.8 MILLIGRAM, 1/WEEK
     Route: 042
     Dates: start: 20150416
  3. IDURSULFASE [Suspect]
     Active Substance: IDURSULFASE
     Dosage: 3 DOSAGE FORM, 1/WEEK
     Route: 042
     Dates: start: 20150416
  4. IDURSULFASE [Suspect]
     Active Substance: IDURSULFASE
     Dosage: 15.5 MILLIGRAM, 1/WEEK
     Route: 042
     Dates: start: 20150416
  5. IDURSULFASE [Suspect]
     Active Substance: IDURSULFASE
     Dosage: 3 DOSAGE FORM, 1/WEEK
     Route: 042
     Dates: start: 20150416
  6. IDURSULFASE [Suspect]
     Active Substance: IDURSULFASE
     Dosage: 3 DOSAGE FORM, 1/WEEK
     Route: 042
     Dates: start: 20150416
  7. IDURSULFASE [Suspect]
     Active Substance: IDURSULFASE
     Dosage: 3 DOSAGE FORM, 1/WEEK
     Route: 065
     Dates: start: 20150416
  8. IDURSULFASE [Suspect]
     Active Substance: IDURSULFASE
     Dosage: 3 DOSAGE FORM, 1/WEEK
     Route: 042
     Dates: start: 20150416
  9. IDURSULFASE [Suspect]
     Active Substance: IDURSULFASE
     Dosage: 16.15 MILLIGRAM, 1/WEEK
     Route: 042
     Dates: start: 20150416
  10. IDURSULFASE [Suspect]
     Active Substance: IDURSULFASE
     Dosage: 3 DOSAGE FORM, 1/WEEK
     Route: 050
     Dates: start: 20150416
  11. IDURSULFASE [Suspect]
     Active Substance: IDURSULFASE
     Dosage: 3 DOSAGE FORM, 1/WEEK
     Route: 050
     Dates: start: 20150416
  12. IDURSULFASE [Suspect]
     Active Substance: IDURSULFASE
     Dosage: 16.15 MILLIGRAM, 1/WEEK
     Route: 050
     Dates: start: 20150416
  13. IDURSULFASE [Suspect]
     Active Substance: IDURSULFASE
     Dosage: 16.15 MILLIGRAM, 1/WEEK
     Route: 050
     Dates: start: 20150416
  14. IDURSULFASE [Suspect]
     Active Substance: IDURSULFASE
     Dosage: 16.5 MILLIGRAM, 1/WEEK
     Route: 050
     Dates: start: 20150416
  15. IDURSULFASE [Suspect]
     Active Substance: IDURSULFASE
     Dosage: 16.5 MILLIGRAM, 1/WEEK
     Route: 050
     Dates: start: 20150416
  16. DIPHENHYDRAMINE [Concomitant]
     Active Substance: DIPHENHYDRAMINE
     Dosage: 25 MILLIGRAM
     Route: 048
  17. BENADRYL [Concomitant]
     Active Substance: DIPHENHYDRAMINE HYDROCHLORIDE
     Dosage: UNK
     Route: 065
  18. TYLENOL [Concomitant]
     Active Substance: ACETAMINOPHEN
     Dosage: UNK
     Route: 065

REACTIONS (27)
  - Deafness [Not Recovered/Not Resolved]
  - Infusion site haemorrhage [Recovered/Resolved]
  - Poor venous access [Recovered/Resolved]
  - Infusion site bruising [Not Recovered/Not Resolved]
  - Moaning [Recovered/Resolved]
  - Contusion [Not Recovered/Not Resolved]
  - Patient uncooperative [Unknown]
  - Respiratory rate decreased [Unknown]
  - Catheter site discolouration [Unknown]
  - Behaviour disorder [Unknown]
  - Skin discolouration [Not Recovered/Not Resolved]
  - Somnolence [Not Recovered/Not Resolved]
  - Drug resistance [Unknown]
  - Irritability [Recovered/Resolved]
  - Gait disturbance [Recovered/Resolved]
  - Poor quality sleep [Unknown]
  - Pain in extremity [Recovered/Resolved]
  - COVID-19 [Not Recovered/Not Resolved]
  - Catheter site haemorrhage [Recovered/Resolved]
  - Catheter site bruise [Recovering/Resolving]
  - Nasal congestion [Recovering/Resolving]
  - Fatigue [Not Recovered/Not Resolved]
  - Cough [Recovering/Resolving]
  - Drug delivery system issue [Unknown]
  - Device issue [Unknown]
  - Inappropriate schedule of product administration [Recovering/Resolving]
  - Incorrect dose administered [Unknown]

NARRATIVE: CASE EVENT DATE: 20200923
